FAERS Safety Report 7578318-3 (Version None)
Quarter: 2011Q2

REPORT INFORMATION
  Report Type: 
  Country: None (occurrence: None)
  Receive Date: 20110628
  Receipt Date: 20110610
  Transmission Date: 20111010
  Serious: Yes (Hospitalization, Other)
  Sender: FDA-Public Use
  Company Number: US-BAYER-2011-020226

PATIENT
  Age: 24 Year
  Sex: Female
  Weight: 68.027 kg

DRUGS (7)
  1. ZYRTEC [Concomitant]
  2. LUPRON [Concomitant]
  3. YASMIN [Suspect]
     Dosage: UNK
     Dates: start: 20040101, end: 20081101
  4. PROVENTIL [Concomitant]
  5. ALBUTEROL SULFATE AUTOHALER [Concomitant]
     Dosage: UNK
     Dates: start: 19870101
  6. ASMANEX TWISTHALER [Concomitant]
  7. ASPIRIN [Concomitant]

REACTIONS (4)
  - EMOTIONAL DISTRESS [None]
  - SUPRAVENTRICULAR TACHYCARDIA [None]
  - INJURY [None]
  - PAIN [None]
